FAERS Safety Report 8950322 (Version 1)
Quarter: 2012Q4

REPORT INFORMATION
  Report Type: Spontaneous
  Country: US (occurrence: None)
  Receive Date: 20121130
  Receipt Date: 20121130
  Transmission Date: 20130627
  Serious: No
  Sender: FDA-Public Use
  Company Number: None

PATIENT
  Sex: Male
  Weight: 63.5 kg

DRUGS (1)
  1. GENERIC LIPITOR ATORVASTATIN CAL 20 MG RANBAXY PHARMACEUTICALS [Suspect]
     Indication: CHOLESTEROL LEVELS RAISED
     Dosage: 20 mg 1 at bedtime po
     Route: 048
     Dates: start: 20120801, end: 20121126

REACTIONS (3)
  - Headache [None]
  - Chest pain [None]
  - Palpitations [None]
